FAERS Safety Report 24780347 (Version 2)
Quarter: 2024Q4

REPORT INFORMATION
  Report Type: Spontaneous
  Country: RO (occurrence: RO)
  Receive Date: 20241227
  Receipt Date: 20241231
  Transmission Date: 20250115
  Serious: Yes (Hospitalization, Other)
  Sender: SANDOZ
  Company Number: None

PATIENT
  Age: 45 Year
  Sex: Male

DRUGS (1)
  1. ETANERCEPT [Suspect]
     Active Substance: ETANERCEPT
     Indication: Ankylosing spondylitis
     Dosage: 50 MG, WEEKLY
     Route: 065

REACTIONS (6)
  - COVID-19 [Recovered/Resolved]
  - Acute respiratory failure [Unknown]
  - Acute kidney injury [Unknown]
  - Hepatic cytolysis [Unknown]
  - Lung opacity [Unknown]
  - Bacterial infection [Recovered/Resolved]
